FAERS Safety Report 9230202 (Version 6)
Quarter: 2013Q4

REPORT INFORMATION
  Report Type: Spontaneous
  Country: DK (occurrence: DK)
  Receive Date: 20130415
  Receipt Date: 20131223
  Transmission Date: 20140711
  Serious: Yes (Death, Hospitalization)
  Sender: FDA-Public Use
  Company Number: DK-JNJFOC-20130403147

PATIENT
  Age: 53 Year
  Sex: Male
  Weight: 88 kg

DRUGS (12)
  1. REMICADE [Suspect]
     Indication: PSORIATIC ARTHROPATHY
     Dosage: 350 DAYS
     Route: 042
     Dates: start: 20071107, end: 20081022
  2. REMICADE [Suspect]
     Indication: PSORIASIS
     Dosage: 350 DAYS
     Route: 042
     Dates: start: 20071107, end: 20081022
  3. HUMIRA [Suspect]
     Indication: PSORIATIC ARTHROPATHY
     Route: 065
     Dates: start: 20111229, end: 20130314
  4. HUMIRA [Suspect]
     Indication: PSORIATIC ARTHROPATHY
     Dosage: DOSE NO.: 40
     Route: 065
     Dates: start: 20081128, end: 20111010
  5. HUMIRA [Suspect]
     Indication: PSORIASIS
     Route: 065
     Dates: start: 20111229, end: 20130314
  6. HUMIRA [Suspect]
     Indication: PSORIASIS
     Dosage: DOSE NO.: 40
     Route: 065
     Dates: start: 20081128, end: 20111010
  7. DUROGESIC [Concomitant]
     Route: 065
  8. PAMOL [Concomitant]
     Route: 065
  9. OXYNORM [Concomitant]
     Route: 065
  10. PREDNISOLONE [Concomitant]
     Route: 065
  11. PANTOPRAZOLE [Concomitant]
     Route: 065
  12. FLUCONAZOLE [Concomitant]
     Route: 065

REACTIONS (5)
  - Adenocarcinoma pancreas [Fatal]
  - Fatigue [Not Recovered/Not Resolved]
  - Weight decreased [Not Recovered/Not Resolved]
  - Chest pain [Unknown]
  - Dyspnoea [Unknown]
